FAERS Safety Report 9681745 (Version 3)
Quarter: 2014Q1

REPORT INFORMATION
  Report Type: Spontaneous
  Country: US (occurrence: CN)
  Receive Date: 20131111
  Receipt Date: 20140221
  Transmission Date: 20141002
  Serious: Yes (Life-Threatening, Hospitalization, Other)
  Sender: FDA-Public Use
  Company Number: CN-BRISTOL-MYERS SQUIBB COMPANY-19767201

PATIENT
  Age: 70 Year
  Sex: Female
  Weight: 54 kg

DRUGS (6)
  1. EFAVIRENZ [Suspect]
     Indication: HIV INFECTION
     Dates: start: 20130506, end: 20130521
  2. VIREAD [Suspect]
     Indication: HIV INFECTION
     Route: 048
     Dates: start: 20130506, end: 20130529
  3. LAMIVUDINE [Concomitant]
     Dates: start: 20130506, end: 20130729
  4. KALETRA [Concomitant]
     Dates: start: 20130521, end: 20130729
  5. ABACAVIR [Concomitant]
  6. SULFAMETHOXAZOLE [Concomitant]
     Dates: start: 20130506, end: 20130521

REACTIONS (9)
  - Encephalopathy [Unknown]
  - Tuberculosis [Unknown]
  - Cerebral infarction [Unknown]
  - Cerebral atrophy [Unknown]
  - Electrolyte imbalance [Unknown]
  - Type 2 diabetes mellitus [Unknown]
  - Poor quality sleep [Recovered/Resolved]
  - Nightmare [Recovered/Resolved]
  - Dizziness [Recovered/Resolved]
